FAERS Safety Report 15299624 (Version 1)
Quarter: 2018Q4

REPORT INFORMATION
  Report Type: Spontaneous
  Country: NL (occurrence: NL)
  Receive Date: 20180821
  Receipt Date: 20180821
  Transmission Date: 20190204
  Serious: Yes (Death, Other)
  Sender: FDA-Public Use
  Company Number: NL-AUROBINDO-AUR-APL-2018-042597

PATIENT
  Age: 36 Year
  Sex: Male

DRUGS (3)
  1. CYCLOPHOSPHAMIDE. [Suspect]
     Active Substance: CYCLOPHOSPHAMIDE
     Indication: TESTIS CANCER
     Dosage: 1500 MILLIGRAM/SQ. METER, CYCLICAL
     Route: 065
  2. THIOTEPA. [Suspect]
     Active Substance: THIOTEPA
     Indication: TESTIS CANCER
     Dosage: 120 MILLIGRAM/SQ. METER, DAILY (60 MG/M2, 2X/DAY)
     Route: 065
  3. CARBOPLATIN CONCENTRATE FOR SOLUTION FOR INFUSION [Suspect]
     Active Substance: CARBOPLATIN
     Indication: PRODUCT USED FOR UNKNOWN INDICATION
     Dosage: 400 MILLIGRAM/SQ. METER, CYCLICAL
     Route: 065

REACTIONS (2)
  - Haemolytic uraemic syndrome [Fatal]
  - Cardiac arrest [Fatal]
